FAERS Safety Report 6713287-7 (Version None)
Quarter: 2010Q2

REPORT INFORMATION
  Report Type: 
  Country: None (occurrence: None)
  Receive Date: 20100505
  Receipt Date: 20100505
  Transmission Date: 20101027
  Serious: Yes (Hospitalization)
  Sender: FDA-Public Use
  Company Number: None

PATIENT
  Sex: Female
  Weight: 81.8 kg

DRUGS (1)
  1. CYTARABINE [Suspect]
     Dosage: 34560 MG
     Dates: end: 20090626

REACTIONS (3)
  - BACK PAIN [None]
  - PRURITUS GENERALISED [None]
  - PYREXIA [None]
